FAERS Safety Report 8927085 (Version 1)
Quarter: 2012Q4

REPORT INFORMATION
  Report Type: 
  Country: CO (occurrence: CO)
  Receive Date: 20121127
  Receipt Date: 20121127
  Transmission Date: 20130627
  Serious: Yes (Other)
  Sender: FDA-Public Use
  Company Number: CO-PFIZER INC-2012296219

PATIENT
  Age: 45 Year
  Sex: Female

DRUGS (1)
  1. LIPITOR [Suspect]
     Indication: CHOLESTEROL BLOOD INCREASED
     Dosage: 40 mg,once daily
     Route: 048
     Dates: start: 2011

REACTIONS (2)
  - Uterine leiomyoma [Not Recovered/Not Resolved]
  - Blood pressure decreased [Not Recovered/Not Resolved]
